FAERS Safety Report 10261824 (Version 2)
Quarter: 2014Q2

REPORT INFORMATION
  Report Type: Spontaneous
  Country: BE (occurrence: BE)
  Receive Date: 20140626
  Receipt Date: 20140626
  Transmission Date: 20141212
  Serious: Yes (Death)
  Sender: FDA-Public Use
  Company Number: BE-BAXTER-2014BAX030614

PATIENT
  Sex: Male

DRUGS (2)
  1. DIANEAL PD4 GLUCOSE 1,36% (13,6 MG/ML) -  SOLUTION POUR DIALYSE P?RITO [Suspect]
     Indication: PERITONEAL DIALYSIS
     Route: 033
     Dates: end: 20140602
  2. EXTRANEAL 7,5%, SOLUTION POUR DIALYSE P?RITON?ALE [Suspect]
     Indication: PERITONEAL DIALYSIS
     Route: 033
     Dates: end: 20140602

REACTIONS (1)
  - Cardiovascular disorder [Fatal]
